FAERS Safety Report 7320537-5 (Version None)
Quarter: 2011Q1

REPORT INFORMATION
  Report Type: 
  Country: None (occurrence: None)
  Receive Date: 20110228
  Receipt Date: 20110223
  Transmission Date: 20110831
  Serious: Yes (Disabling)
  Sender: FDA-Public Use
  Company Number: GB-PFIZER INC-2011040172

PATIENT
  Age: 58 Year
  Sex: Male
  Weight: 84.82 kg

DRUGS (6)
  1. RAMIPRIL [Concomitant]
     Dosage: UNK
     Dates: start: 20101018, end: 20110209
  2. AMLODIPINE BESYLATE [Suspect]
     Dosage: UNK
     Dates: start: 20101004
  3. PROPRANOLOL [Concomitant]
     Dosage: UNK
     Dates: start: 20101018, end: 20110209
  4. FEXOFENADINE [Concomitant]
     Dosage: UNK
     Dates: start: 20110214
  5. EPADERM [Concomitant]
     Dosage: UNK
     Dates: start: 20110214
  6. FLUCLOXACILLIN [Concomitant]
     Dosage: UNK
     Dates: start: 20110214

REACTIONS (2)
  - RASH MACULAR [None]
  - BLISTER [None]
